FAERS Safety Report 11404527 (Version 1)
Quarter: 2015Q3

REPORT INFORMATION
  Report Type: Spontaneous
  Country: CA (occurrence: CA)
  Receive Date: 20150821
  Receipt Date: 20150821
  Transmission Date: 20151125
  Serious: Yes (Disabling)
  Sender: FDA-Public Use
  Company Number: CA-TEVA-587526ACC

PATIENT
  Age: 39 Year
  Sex: Female
  Weight: 61.29 kg

DRUGS (8)
  1. RATIO TRAZODONE [Suspect]
     Active Substance: TRAZODONE HYDROCHLORIDE
     Indication: BURNOUT SYNDROME
     Dosage: 75 MILLIGRAM DAILY;
     Route: 048
  2. ZOLOFT [Suspect]
     Active Substance: SERTRALINE HYDROCHLORIDE
     Indication: BURNOUT SYNDROME
  3. ZOLOFT [Suspect]
     Active Substance: SERTRALINE HYDROCHLORIDE
     Indication: BURNOUT SYNDROME
  4. RAN-ZOPICLONE [Concomitant]
  5. RATIO TRAZODONE [Suspect]
     Active Substance: TRAZODONE HYDROCHLORIDE
     Indication: DEPRESSION
     Dosage: 50 MILLIGRAM DAILY;
     Route: 048
  6. ZOLOFT [Suspect]
     Active Substance: SERTRALINE HYDROCHLORIDE
     Indication: DEPRESSION
     Dosage: 25 MILLIGRAM DAILY;
     Route: 048
  7. ZOLOFT [Suspect]
     Active Substance: SERTRALINE HYDROCHLORIDE
     Indication: DEPRESSION
     Dosage: 150 MILLIGRAM DAILY;
     Route: 048
  8. MARVELON [Concomitant]
     Active Substance: DESOGESTREL\ETHINYL ESTRADIOL

REACTIONS (31)
  - Chills [Recovering/Resolving]
  - Diarrhoea [Recovering/Resolving]
  - Fibromyalgia [Recovering/Resolving]
  - Spinal pain [Recovering/Resolving]
  - Epilepsy [Recovering/Resolving]
  - Exaggerated startle response [Recovering/Resolving]
  - Eye pain [Recovering/Resolving]
  - Gait disturbance [Recovering/Resolving]
  - Hyperreflexia [Recovering/Resolving]
  - Post-traumatic stress disorder [Recovering/Resolving]
  - Balance disorder [Recovering/Resolving]
  - Hypervigilance [Recovering/Resolving]
  - Insomnia [Recovering/Resolving]
  - Joint crepitation [Recovering/Resolving]
  - Aphasia [Recovering/Resolving]
  - Dysphemia [Recovering/Resolving]
  - Fatigue [Recovering/Resolving]
  - Headache [Recovering/Resolving]
  - Muscle rigidity [Recovering/Resolving]
  - Cognitive disorder [Recovering/Resolving]
  - Somatoform disorder neurologic [Recovering/Resolving]
  - Agitation [Recovering/Resolving]
  - Amnesia [Recovering/Resolving]
  - Disturbance in attention [Recovering/Resolving]
  - Dyspnoea [Recovering/Resolving]
  - Muscular weakness [Recovering/Resolving]
  - Myoclonus [Recovering/Resolving]
  - Pain in extremity [Recovering/Resolving]
  - Arthralgia [Recovering/Resolving]
  - Hyperhidrosis [Recovering/Resolving]
  - Nausea [Recovering/Resolving]
